FAERS Safety Report 18794423 (Version 1)
Quarter: 2021Q1

REPORT INFORMATION
  Report Type: Spontaneous
  Country: BE (occurrence: BE)
  Receive Date: 20210127
  Receipt Date: 20210127
  Transmission Date: 20210419
  Serious: Yes (Other)
  Sender: FDA-Public Use
  Company Number: BE-PFIZER INC-2021029047

PATIENT
  Age: 53 Year
  Sex: Female

DRUGS (4)
  1. IFOSFAMIDE. [Suspect]
     Active Substance: IFOSFAMIDE
     Indication: RHABDOMYOSARCOMA
  2. IFOSFAMIDE. [Suspect]
     Active Substance: IFOSFAMIDE
     Indication: METASTASES TO LUNG
     Dosage: UNK, CYCLIC (GIVEN AT 80% OF THE INITIAL DOSE)
     Dates: start: 20171107, end: 201801
  3. DOXORUBICIN HCL [Suspect]
     Active Substance: DOXORUBICIN HYDROCHLORIDE
     Indication: METASTASES TO LUNG
     Dosage: UNK, CYCLIC (GIVEN AT 80% OF THE INITIAL DOSE)
     Dates: start: 20171107, end: 201801
  4. DOXORUBICIN HCL [Suspect]
     Active Substance: DOXORUBICIN HYDROCHLORIDE
     Indication: RHABDOMYOSARCOMA

REACTIONS (6)
  - Multiple-drug resistance [Unknown]
  - Ejection fraction decreased [Unknown]
  - Febrile neutropenia [Unknown]
  - Neutropenia [Unknown]
  - Drug tolerance decreased [Unknown]
  - Thrombocytopenia [Unknown]

NARRATIVE: CASE EVENT DATE: 2017
